FAERS Safety Report 5631993-2 (Version None)
Quarter: 2008Q1

REPORT INFORMATION
  Report Type: 
  Country: None (occurrence: None)
  Receive Date: 20080213
  Receipt Date: 20080128
  Transmission Date: 20080703
  Serious: Yes (Other)
  Sender: FDA-Public Use
  Company Number: JPI-P-002851

PATIENT
  Age: 38 Year
  Sex: Male

DRUGS (8)
  1. LUVOX [Suspect]
     Indication: DEPRESSION
     Dosage: (150 MG, 1 D, ORAL)
     Route: 048
     Dates: start: 20070728, end: 20071115
  2. RISPERIDONE [Concomitant]
  3. ZOPICLONE (ZOPICLONE) [Concomitant]
  4. RILMAZAFONE HYDROCHLORIDE (RILMAZAFONE HYDROCHLORIDE) [Concomitant]
  5. PAROXETINE HCL [Concomitant]
  6. OLANZAPINE [Concomitant]
  7. BROTIZOLAM (BROTIZOLAM) [Concomitant]
  8. TRIAZOLAM [Concomitant]

REACTIONS (13)
  - ALANINE AMINOTRANSFERASE INCREASED [None]
  - ALCOHOL USE [None]
  - BLOOD CHOLESTEROL INCREASED [None]
  - BLOOD CREATININE INCREASED [None]
  - BLOOD POTASSIUM DECREASED [None]
  - BLOOD SODIUM DECREASED [None]
  - BLOOD TRIGLYCERIDES INCREASED [None]
  - BLOOD URIC ACID INCREASED [None]
  - FATIGUE [None]
  - GAMMA-GLUTAMYLTRANSFERASE INCREASED [None]
  - HAEMATOCRIT DECREASED [None]
  - RED BLOOD CELL COUNT DECREASED [None]
  - WHITE BLOOD CELL COUNT INCREASED [None]
